FAERS Safety Report 15729911 (Version 1)
Quarter: 2018Q4

REPORT INFORMATION
  Report Type: Spontaneous
  Country: US (occurrence: US)
  Receive Date: 20181217
  Receipt Date: 20181217
  Transmission Date: 20190205
  Serious: No
  Sender: FDA-Public Use
  Company Number: US-JNJFOC-20181141013

PATIENT
  Age: 22 Year
  Sex: Female

DRUGS (2)
  1. INVEGA SUSTENNA [Suspect]
     Active Substance: PALIPERIDONE PALMITATE
     Indication: PRODUCT USED FOR UNKNOWN INDICATION
     Route: 030
  2. INVEGA SUSTENNA [Suspect]
     Active Substance: PALIPERIDONE PALMITATE
     Indication: PRODUCT USED FOR UNKNOWN INDICATION
     Dosage: ADMINISTRED AFTER 5 AND 1/2 WEEK
     Route: 030

REACTIONS (6)
  - Injection site pain [Recovered/Resolved]
  - Application site swelling [Recovered/Resolved]
  - Treatment noncompliance [Unknown]
  - Pain [Recovered/Resolved]
  - Hypokinesia [Recovered/Resolved]
  - Inappropriate schedule of product administration [Unknown]

NARRATIVE: CASE EVENT DATE: 20181128
